FAERS Safety Report 8505870-3 (Version None)
Quarter: 2012Q3

REPORT INFORMATION
  Report Type: 
  Country: None (occurrence: None)
  Receive Date: 20120712
  Receipt Date: 20120629
  Transmission Date: 20120928
  Serious: Yes (Hospitalization)
  Sender: FDA-Public Use
  Company Number: US-ACTELION-A-NJ2012-68062

PATIENT

DRUGS (4)
  1. TRACLEER [Suspect]
     Indication: PULMONARY ARTERIAL HYPERTENSION
     Dosage: 125 MG, BID
     Route: 048
  2. LASIX [Concomitant]
  3. TRACLEER [Suspect]
     Dosage: 125 MG, BID
     Route: 048
  4. ASPIRIN [Concomitant]

REACTIONS (2)
  - DYSPNOEA [None]
  - TREATMENT NONCOMPLIANCE [None]
